FAERS Safety Report 7090825-9 (Version None)
Quarter: 2010Q4

REPORT INFORMATION
  Report Type: 
  Country: None (occurrence: None)
  Receive Date: 20101109
  Receipt Date: 20101103
  Transmission Date: 20110411
  Serious: Yes (Hospitalization, Other)
  Sender: FDA-Public Use
  Company Number: BR-ABBOTT-10P-020-0683398-00

PATIENT
  Sex: Male
  Weight: 90 kg

DRUGS (5)
  1. HUMIRA [Suspect]
     Indication: CROHN'S DISEASE
     Route: 030
     Dates: end: 20101102
  2. HUMIRA [Suspect]
  3. HUMIRA [Suspect]
     Dosage: 15 DAYS
  4. AZATHIOPRINE [Suspect]
     Indication: PRODUCT USED FOR UNKNOWN INDICATION
     Dates: end: 20101029
  5. PREDNISOLONE [Concomitant]
     Route: 048

REACTIONS (6)
  - ABDOMINAL PAIN [None]
  - CROHN'S DISEASE [None]
  - DEHYDRATION [None]
  - NAUSEA [None]
  - RENAL DISORDER [None]
  - VOMITING [None]
